FAERS Safety Report 6133293-3 (Version None)
Quarter: 2009Q1

REPORT INFORMATION
  Report Type: 
  Country: None (occurrence: None)
  Receive Date: 20090326
  Receipt Date: 20090318
  Transmission Date: 20090719
  Serious: Yes (Hospitalization, Other)
  Sender: FDA-Public Use
  Company Number: US-BAYER-200910920NA

PATIENT
  Age: 46 Year
  Sex: Female
  Weight: 112 kg

DRUGS (3)
  1. YAZ [Suspect]
     Indication: DRUG USE FOR UNKNOWN INDICATION
     Route: 048
  2. RAMIPRIL [Suspect]
     Indication: HYPERTENSION
     Dosage: DOUBLE BLIND STUDY
     Route: 048
     Dates: start: 20081119, end: 20081226
  3. ALISKIREN HCTZ [Suspect]
     Indication: HYPERTENSION
     Route: 048
     Dates: start: 20081119, end: 20081226

REACTIONS (4)
  - DEEP VEIN THROMBOSIS [None]
  - HIP FRACTURE [None]
  - OEDEMA PERIPHERAL [None]
  - PAIN IN EXTREMITY [None]
